FAERS Safety Report 8484807-X (Version None)
Quarter: 2012Q3

REPORT INFORMATION
  Report Type: 
  Country: None (occurrence: None)
  Receive Date: 20120703
  Receipt Date: 20120625
  Transmission Date: 20120928
  Serious: Yes (Other)
  Sender: FDA-Public Use
  Company Number: GB-JNJFOC-20120613161

PATIENT
  Age: 40 Year
  Sex: Female

DRUGS (5)
  1. NORETHINDRONE [Suspect]
     Indication: HAEMORRHAGE
     Route: 048
  2. ABILIFY [Suspect]
     Indication: PRODUCT USED FOR UNKNOWN INDICATION
     Dosage: DOSE REDUCED TO 2.5 MG AT NIGHT
     Route: 065
  3. VALPROATE SODIUM [Suspect]
     Indication: PRODUCT USED FOR UNKNOWN INDICATION
     Route: 065
  4. ABILIFY [Suspect]
     Route: 065
  5. FOLIC ACID [Suspect]
     Indication: PRODUCT USED FOR UNKNOWN INDICATION
     Route: 065

REACTIONS (3)
  - ABORTION SPONTANEOUS [None]
  - OFF LABEL USE [None]
  - MATERNAL EXPOSURE DURING PREGNANCY [None]
